FAERS Safety Report 22073056 (Version 4)
Quarter: 2023Q1

REPORT INFORMATION
  Report Type: Spontaneous
  Country: GB (occurrence: GB)
  Receive Date: 20230308
  Receipt Date: 20230327
  Transmission Date: 20230417
  Serious: Yes (Hospitalization)
  Sender: FDA-Public Use
  Company Number: GB-JNJFOC-20230307064

PATIENT
  Age: 2 Decade
  Sex: Male

DRUGS (1)
  1. ACETAMINOPHEN [Suspect]
     Active Substance: ACETAMINOPHEN
     Indication: Product used for unknown indication
     Route: 048

REACTIONS (5)
  - Acute kidney injury [Recovered/Resolved]
  - Intentional self-injury [Unknown]
  - Hepatic function abnormal [Recovered/Resolved]
  - Diarrhoea [Unknown]
  - Intentional overdose [Unknown]
